FAERS Safety Report 25977053 (Version 1)
Quarter: 2025Q4

REPORT INFORMATION
  Report Type: Spontaneous
  Country: JP (occurrence: JP)
  Receive Date: 20251030
  Receipt Date: 20251030
  Transmission Date: 20260117
  Serious: Yes (Other)
  Sender: JOHNSON AND JOHNSON
  Company Number: JP-JNJFOC-20251029432

PATIENT
  Age: 3 Year
  Sex: Male

DRUGS (8)
  1. OPSUMIT [Suspect]
     Active Substance: MACITENTAN
     Indication: Pulmonary arterial hypertension
     Dosage: DOSE UNKNOWN
     Route: 048
  2. HYDROXOCOBALAMIN ACETATE [Concomitant]
     Active Substance: HYDROXOCOBALAMIN ACETATE
     Indication: Inborn error of metabolism
     Dosage: DOSE UNKNOWN
     Route: 048
  3. HYDROXOCOBALAMIN ACETATE [Concomitant]
     Active Substance: HYDROXOCOBALAMIN ACETATE
     Dosage: DOSE UNKNOWN?DOSE INCREASED
     Route: 048
  4. BETAINE [Concomitant]
     Active Substance: BETAINE
     Indication: Inborn error of metabolism
     Dosage: DOSE UNKNOWN
     Route: 048
  5. BETAINE [Concomitant]
     Active Substance: BETAINE
     Dosage: DOSE UNKNOWN?DOSE INCREASED
     Route: 048
  6. UNSPECIFIED INGREDIENT [Concomitant]
     Active Substance: UNSPECIFIED INGREDIENT
     Indication: Cardiac failure congestive
     Dosage: DOSE UNKNOWN
     Route: 065
  7. UNSPECIFIED INGREDIENT [Concomitant]
     Active Substance: UNSPECIFIED INGREDIENT
     Indication: Pulmonary congestion
     Dosage: DOSE UNKNOWN?DOSE INCREASED
     Route: 065
  8. SILDENAFIL CITRATE [Concomitant]
     Active Substance: SILDENAFIL CITRATE
     Indication: Pulmonary arterial hypertension
     Dosage: DOSE UNKNOWN
     Route: 065

REACTIONS (2)
  - Pulmonary congestion [Recovering/Resolving]
  - Off label use [Unknown]
